FAERS Safety Report 23419045 (Version 2)
Quarter: 2024Q1

REPORT INFORMATION
  Report Type: Spontaneous
  Country: CN (occurrence: CN)
  Receive Date: 20240118
  Receipt Date: 20240131
  Transmission Date: 20240410
  Serious: Yes (Hospitalization, Other)
  Sender: FDA-Public Use
  Company Number: CN-009507513-2306CHN013618

PATIENT
  Age: 60 Year
  Sex: Male
  Weight: 75 kg

DRUGS (21)
  1. KEYTRUDA [Suspect]
     Active Substance: PEMBROLIZUMAB
     Indication: Non-small cell lung cancer
     Dosage: 200 MG, FREQ: IMMEDIATELY (ST), C1D1
     Route: 041
     Dates: start: 20230505, end: 20230505
  2. KEYTRUDA [Suspect]
     Active Substance: PEMBROLIZUMAB
     Dosage: 200 MG, FREQ: ST, C2D1
     Route: 041
     Dates: start: 20230525, end: 20230525
  3. KEYTRUDA [Suspect]
     Active Substance: PEMBROLIZUMAB
     Dosage: 200 MG, FREQ: ST, C3D1
     Route: 041
     Dates: start: 20230615, end: 20230615
  4. KEYTRUDA [Suspect]
     Active Substance: PEMBROLIZUMAB
     Dosage: 200 MG, FREQ: ST, C4D1
     Route: 041
     Dates: start: 20230706, end: 20230706
  5. KEYTRUDA [Suspect]
     Active Substance: PEMBROLIZUMAB
     Dosage: 200 MG, FREQ: ST, C5D1
     Route: 041
     Dates: start: 20230727, end: 20230727
  6. KEYTRUDA [Suspect]
     Active Substance: PEMBROLIZUMAB
     Dosage: 200 MG, FREQ: ST,C6D1
     Route: 041
     Dates: start: 20230817, end: 20230817
  7. KEYTRUDA [Suspect]
     Active Substance: PEMBROLIZUMAB
     Dosage: 200 MG, FREQ: ST,C7D1
     Route: 041
     Dates: start: 20230907, end: 20230907
  8. KEYTRUDA [Suspect]
     Active Substance: PEMBROLIZUMAB
     Dosage: 200 MG, FREQ: ST,C8D1
     Route: 041
     Dates: start: 20230928, end: 20230928
  9. KEYTRUDA [Suspect]
     Active Substance: PEMBROLIZUMAB
     Dosage: 200 MG, FREQ: ST,C8D1
     Route: 041
     Dates: start: 20231020, end: 20231020
  10. DU MI KE [Concomitant]
     Indication: Abdominal distension
     Dosage: 15 ML, TID
     Route: 048
     Dates: start: 20230507
  11. MINERALS\VITAMINS [Concomitant]
     Active Substance: MINERALS\VITAMINS
     Indication: Prophylaxis
     Dosage: 1 TABLET, QD
     Route: 048
     Dates: start: 20230413
  12. COMPOUND ALPHA KETOACID [Concomitant]
     Indication: Blood creatinine increased
     Dosage: 4 TABLET, TID
     Route: 048
     Dates: start: 20230526
  13. MIDAZOLAM [Concomitant]
     Active Substance: MIDAZOLAM
     Indication: Anaesthesia procedure
     Dosage: UNK
     Dates: start: 20230616, end: 20230616
  14. REMIFENTANIL HYDROCHLORIDE [Concomitant]
     Active Substance: REMIFENTANIL HYDROCHLORIDE
     Indication: Anaesthesia procedure
     Dosage: UNK
     Dates: start: 20230616, end: 20230616
  15. EPHEDRINE HYDROCHLORIDE [Concomitant]
     Active Substance: EPHEDRINE HYDROCHLORIDE
     Indication: Anaesthesia procedure
     Dosage: UNK
     Dates: start: 20230616, end: 20230616
  16. ATROPINE SULFATE [Concomitant]
     Active Substance: ATROPINE SULFATE
     Indication: Anaesthesia procedure
     Dosage: UNK
     Dates: start: 20230616, end: 20230616
  17. IOHEXOL [Concomitant]
     Active Substance: IOHEXOL
     Indication: Intraoperative care
     Dosage: UNK
     Dates: start: 20230616, end: 20230616
  18. SAI GE EN [Concomitant]
     Indication: Antiemetic supportive care
     Dosage: UNK
     Dates: start: 20230616, end: 20230616
  19. CALCIUM GLUCONATE;GLUCOSE;MAGNESIUM CHLORIDE;POTASSIUM;SODIUM ACETATE; [Concomitant]
     Indication: Electrolyte substitution therapy
     Dosage: UNK
     Dates: start: 20230616, end: 20230616
  20. HETASTARCH [Concomitant]
     Active Substance: HETASTARCH
     Indication: Electrolyte substitution therapy
     Dosage: UNK
     Dates: start: 20230616, end: 20230616
  21. DEXAMETHASONE SODIUM PHOSPHATE [Concomitant]
     Active Substance: DEXAMETHASONE PHOSPHATE\DEXAMETHASONE SODIUM PHOSPHATE
     Indication: Antiinflammatory therapy
     Dosage: UNK
     Dates: start: 20230616, end: 20230616

REACTIONS (15)
  - Ureteric stenosis [Recovered/Resolved]
  - Malignant neoplasm progression [Unknown]
  - Haematocrit decreased [Unknown]
  - Mean cell volume increased [Unknown]
  - Red blood cell count decreased [Unknown]
  - Mean cell haemoglobin increased [Unknown]
  - Chronic obstructive pulmonary disease [Unknown]
  - Gouty arthritis [Unknown]
  - Sinus bradycardia [Unknown]
  - Hepatic cyst [Unknown]
  - Arteriosclerosis [Unknown]
  - Renal cyst [Unknown]
  - Emphysema [Unknown]
  - Inappropriate schedule of product administration [Unknown]
  - Inappropriate schedule of product administration [Unknown]

NARRATIVE: CASE EVENT DATE: 20230525
